FAERS Safety Report 10160548 (Version 1)
Quarter: 2014Q2

REPORT INFORMATION
  Report Type: Spontaneous
  Country: TR (occurrence: TR)
  Receive Date: 20140508
  Receipt Date: 20140508
  Transmission Date: 20141212
  Serious: Yes (Hospitalization, Other)
  Sender: FDA-Public Use
  Company Number: TR-ACTAVIS-2014-09346

PATIENT
  Age: 52 Year
  Sex: Female

DRUGS (2)
  1. SERTRALINE (UNKNOWN) [Suspect]
     Indication: DEPRESSED MOOD
     Dosage: 100 MG, DAILY
     Route: 065
  2. PAROXETINE (UNKNOWN) [Interacting]
     Indication: DEPRESSED MOOD
     Dosage: 30 MG, DAILY
     Route: 065

REACTIONS (2)
  - Neuroleptic malignant syndrome [Recovered/Resolved]
  - Drug interaction [Recovered/Resolved]
